FAERS Safety Report 6582984-9 (Version None)
Quarter: 2010Q1

REPORT INFORMATION
  Report Type: 
  Country: None (occurrence: None)
  Receive Date: 20100216
  Receipt Date: 20100203
  Transmission Date: 20100710
  Serious: Yes (Other)
  Sender: FDA-Public Use
  Company Number: AU-SANOFI-AVENTIS-2010SA006208

PATIENT
  Age: 25 Year
  Sex: Female

DRUGS (3)
  1. STILNOX [Suspect]
     Route: 048
  2. ROHYPNOL [Suspect]
     Route: 048
  3. ALCOHOL [Suspect]
     Route: 048

REACTIONS (5)
  - DIZZINESS [None]
  - INTENTIONAL DRUG MISUSE [None]
  - LOSS OF CONSCIOUSNESS [None]
  - SENSORY DISTURBANCE [None]
  - VICTIM OF SEXUAL ABUSE [None]
